FAERS Safety Report 6424364-2 (Version None)
Quarter: 2009Q4

REPORT INFORMATION
  Report Type: 
  Country: None (occurrence: None)
  Receive Date: 20091103
  Receipt Date: 20091023
  Transmission Date: 20100525
  Serious: Yes (Other)
  Sender: FDA-Public Use
  Company Number: US-CELGENEUS-163-20785-09100321

PATIENT
  Sex: Female

DRUGS (2)
  1. THALOMID [Suspect]
     Indication: MYELODYSPLASTIC SYNDROME
     Route: 048
     Dates: start: 20090315, end: 20090831
  2. THALOMID [Suspect]
     Indication: LYMPHOMA

REACTIONS (2)
  - PLATELET COUNT INCREASED [None]
  - THROMBOSIS [None]
